FAERS Safety Report 8510476-6 (Version None)
Quarter: 2012Q3

REPORT INFORMATION
  Report Type: 
  Country: None (occurrence: None)
  Receive Date: 20120715
  Receipt Date: 20120710
  Transmission Date: 20120928
  Serious: Yes (Other)
  Sender: FDA-Public Use
  Company Number: PHHY2012AT059480

PATIENT
  Age: 75 Year
  Sex: Female
  Weight: 65 kg

DRUGS (7)
  1. ASPIRIN [Interacting]
  2. HALDOL [Suspect]
     Indication: NAUSEA
     Dosage: 3 GTT, TID
     Route: 048
     Dates: start: 20120605, end: 20120606
  3. VENLAFAXINE [Interacting]
  4. DELPRAL [Interacting]
  5. TRAZODONE HCL [Interacting]
  6. QUILONORM [Interacting]
  7. MIRTAZAPINE [Interacting]

REACTIONS (2)
  - VOMITING [None]
  - DRUG INTERACTION [None]
